FAERS Safety Report 13848466 (Version 1)
Quarter: 2017Q3

REPORT INFORMATION
  Report Type: Spontaneous
  Country: US (occurrence: US)
  Receive Date: 20170809
  Receipt Date: 20170809
  Transmission Date: 20171127
  Serious: No
  Sender: FDA-Public Use
  Company Number: US-PURDUE-USA-2017-0140111

PATIENT
  Age: 66 Year
  Sex: Female

DRUGS (2)
  1. BUTRANS [Suspect]
     Active Substance: BUPRENORPHINE
     Indication: NECK PAIN
     Dosage: 7.5 MCG/HR, WEEKLY
     Route: 062
     Dates: start: 201704
  2. NORCO [Suspect]
     Active Substance: ACETAMINOPHEN\HYDROCODONE BITARTRATE
     Indication: PAIN
     Dosage: UNK
     Route: 048

REACTIONS (7)
  - Inappropriate schedule of drug administration [Not Recovered/Not Resolved]
  - Blood pressure diastolic increased [Unknown]
  - Feeling jittery [Recovered/Resolved]
  - Pain [Not Recovered/Not Resolved]
  - Product physical issue [Unknown]
  - Blood pressure systolic increased [Unknown]
  - Unevaluable event [Unknown]

NARRATIVE: CASE EVENT DATE: 20170729
